FAERS Safety Report 16796269 (Version 1)
Quarter: 2019Q3

REPORT INFORMATION
  Report Type: Spontaneous
  Country: FR (occurrence: FR)
  Receive Date: 20190911
  Receipt Date: 20190911
  Transmission Date: 20191005
  Serious: Yes (Other)
  Sender: FDA-Public Use
  Company Number: FR-BAYER-2019-164473

PATIENT
  Age: 70 Year
  Sex: Male

DRUGS (6)
  1. STIVARGA [Suspect]
     Active Substance: REGORAFENIB
     Indication: GASTROINTESTINAL STROMAL TUMOUR
     Dosage: DAILY DOSE 120 MG (3 WEEKS/4)
     Dates: start: 201612
  2. SUNITINIB [Concomitant]
     Active Substance: SUNITINIB
     Dosage: DAILY DOSE 37 MG
     Dates: start: 201601, end: 201603
  3. STIVARGA [Suspect]
     Active Substance: REGORAFENIB
     Indication: GASTROINTESTINAL STROMAL TUMOUR
     Dosage: DAILY DOSE 160 MG (3 WEEKS/4)
     Dates: start: 201612, end: 201702
  4. STIVARGA [Suspect]
     Active Substance: REGORAFENIB
     Indication: GASTROINTESTINAL STROMAL TUMOUR
     Dosage: DAILY DOSE 120 MG (3 WEEKS/4)
     Dates: start: 201603, end: 201609
  5. SUNITINIB [Concomitant]
     Active Substance: SUNITINIB
     Dosage: 50 MG (4 WEEK /6)
     Dates: start: 201507, end: 201601
  6. STIVARGA [Suspect]
     Active Substance: REGORAFENIB
     Indication: GASTROINTESTINAL STROMAL TUMOUR
     Dosage: DAILY DOSE 160 MG (3 WEEKS/4)
     Dates: start: 201609, end: 201611

REACTIONS (4)
  - Off label use [None]
  - Diarrhoea [None]
  - Cell death [None]
  - Gastrointestinal stromal tumour [None]

NARRATIVE: CASE EVENT DATE: 201603
